FAERS Safety Report 7693290-3 (Version None)
Quarter: 2011Q3

REPORT INFORMATION
  Report Type: 
  Country: None (occurrence: None)
  Receive Date: 20110819
  Receipt Date: 20110805
  Transmission Date: 20111222
  Serious: Yes (Other)
  Sender: FDA-Public Use
  Company Number: PHHY2011BR70586

PATIENT
  Sex: Female

DRUGS (9)
  1. MELOXICAM [Concomitant]
     Indication: PAIN
     Dosage: 1 DF EVERY 12 HOURS
     Route: 048
  2. DIOVAN [Suspect]
     Indication: HYPERTENSION
     Dosage: 160 MG, PER DAY
     Route: 048
  3. SIMVASTATIN [Concomitant]
     Indication: BLOOD CHOLESTEROL INCREASED
     Dosage: 1 DF, PER DAY
     Route: 048
  4. CLONIXIN LYSINATE [Concomitant]
     Indication: PAIN
     Dosage: 125 MG, EVERY 8 HOURS
     Route: 048
  5. METFORMIN [Suspect]
     Dosage: 850 MG, UNK
  6. BEZAFIBRATE [Concomitant]
     Indication: BLOOD CHOLESTEROL INCREASED
     Dosage: 1 DF, PER DAY
     Route: 048
  7. ASPIRIN [Concomitant]
     Dosage: 1 DF, PER DAY
     Route: 048
  8. DEZAFIDRATE [Concomitant]
     Indication: BLOOD CHOLESTEROL INCREASED
     Dosage: 1 DF PER DAY
     Route: 048
  9. MODURETIC 5-50 [Concomitant]
     Indication: DYSURIA
     Dosage: 1 DF, PER DAY
     Route: 048

REACTIONS (2)
  - SPINAL DISORDER [None]
  - BLOOD URINE PRESENT [None]
